FAERS Safety Report 6205140-2 (Version None)
Quarter: 2009Q2

REPORT INFORMATION
  Report Type: 
  Country: None (occurrence: None)
  Receive Date: 20090527
  Receipt Date: 20090223
  Transmission Date: 20091009
  Serious: No
  Sender: FDA-Public Use
  Company Number: US-ABBOTT-09P-163-0559349-00

PATIENT
  Sex: Male
  Weight: 81.72 kg

DRUGS (8)
  1. SIMCOR [Suspect]
     Indication: BLOOD TRIGLYCERIDES INCREASED
     Dosage: 1000/20
     Route: 048
  2. ASPIRIN [Concomitant]
     Indication: PROPHYLAXIS
     Dates: start: 20090221
  3. ASPIRIN [Concomitant]
     Indication: FLUSHING
  4. AVAPRO [Concomitant]
     Indication: HYPERTENSION
     Route: 048
  5. HYDRALAZINE HCL [Concomitant]
     Indication: GLOSSODYNIA
     Route: 048
     Dates: start: 20050101
  6. MULTI-VITAMIN [Concomitant]
     Indication: VITAMIN SUPPLEMENTATION
     Route: 048
  7. FISH OIL [Concomitant]
     Indication: MEDICAL DIET
     Route: 048
  8. FLAXSEED OIL [Concomitant]
     Indication: MEDICAL DIET
     Route: 048

REACTIONS (2)
  - ERYTHEMA [None]
  - FLUSHING [None]
